FAERS Safety Report 9511005 (Version 2)
Quarter: 2013Q3

REPORT INFORMATION
  Report Type: Spontaneous
  Country: FI (occurrence: FI)
  Receive Date: 20130910
  Receipt Date: 20130917
  Transmission Date: 20140515
  Serious: Yes (Hospitalization)
  Sender: FDA-Public Use
  Company Number: FI-009507513-1309FIN002376

PATIENT
  Age: 86 Year
  Sex: Female

DRUGS (13)
  1. MIRTAZAPINE [Suspect]
     Dosage: 15 MG, QD
     Route: 048
  2. PANTOPRAZOLE [Concomitant]
     Dosage: 2.0 MG, QD
  3. ESCITALOPRAM [Concomitant]
     Dosage: 15 MG, QD
  4. MELATONIN [Concomitant]
     Dosage: 3 MG, QD
  5. OXAZEPAM [Concomitant]
     Dosage: 15 MG, AT NIGHT
  6. QUETIAPINE FUMARATE [Concomitant]
     Dosage: 50 MG, IN THE EVENING
  7. ACETAMINOPHEN [Concomitant]
     Dosage: 1 G, TID
  8. FENTANYL [Concomitant]
     Dosage: 25 MICROGRAM, AT THREE DAY INTERVALS
  9. LEVOTHYROXINE SODIUM [Concomitant]
     Dosage: 0.1 MG, QD
  10. PREDNISONE [Concomitant]
     Dosage: 5 MG, QD
  11. WARFARIN [Concomitant]
     Dosage: 3 MG, AS PER SEPARATE INSTRUCTIONS
  12. BISOPROLOL [Concomitant]
     Dosage: 2.5 MG, BID
  13. OXYCODONE [Concomitant]
     Dosage: 5 MG, BID

REACTIONS (2)
  - Pain in extremity [Unknown]
  - Dyspnoea [Unknown]
